FAERS Safety Report 21851747 (Version 1)
Quarter: 2023Q1

REPORT INFORMATION
  Report Type: Spontaneous
  Country: US (occurrence: US)
  Receive Date: 20230112
  Receipt Date: 20230112
  Transmission Date: 20230417
  Serious: Yes (Other)
  Sender: FDA-Public Use
  Company Number: US-BRISTOL-MYERS SQUIBB COMPANY-2023-004451

PATIENT
  Age: 74 Year
  Sex: Male

DRUGS (1)
  1. POMALYST [Suspect]
     Active Substance: POMALIDOMIDE
     Indication: Bone marrow transplant
     Dosage: TAKE 1 CAPSULE WHOLE BY MOUTH EVERY DAY FOR 21 ?CONSECUTIVE DAYS THEN STOP FOR 7 CONSECUTIVE DAYS
     Route: 048

REACTIONS (3)
  - Off label use [Unknown]
  - Neuropathy peripheral [Unknown]
  - Asthenia [Unknown]
